FAERS Safety Report 13574612 (Version 5)
Quarter: 2018Q2

REPORT INFORMATION
  Report Type: Report from Study
  Country: CN (occurrence: CN)
  Receive Date: 20170523
  Receipt Date: 20180517
  Transmission Date: 20180711
  Serious: Yes (Death, Hospitalization, Other)
  Sender: FDA-Public Use
  Company Number: PHHY2017CN056702

PATIENT
  Age: 46 Year
  Sex: Female
  Weight: 70 kg

DRUGS (120)
  1. SODIUM ACETATE. [Concomitant]
     Active Substance: SODIUM ACETATE
     Dosage: 1000 ML, QD
     Route: 042
     Dates: start: 20161021, end: 20161021
  2. HEPARIN SODIUM. [Concomitant]
     Active Substance: HEPARIN SODIUM
     Indication: PRODUCT USED FOR UNKNOWN INDICATION
     Dosage: 1.25 WU, QD
     Route: 042
     Dates: start: 20161017, end: 20161017
  3. SODIUM PHOSPHATE [Concomitant]
     Active Substance: SODIUM PHOSPHATE
     Dosage: 40 MG, QD
     Route: 042
     Dates: start: 20161027, end: 20161027
  4. LANSOPRAZOLE. [Concomitant]
     Active Substance: LANSOPRAZOLE
     Indication: PRODUCT USED FOR UNKNOWN INDICATION
     Dosage: 60 MG, QD
     Route: 042
     Dates: start: 20161017, end: 20161017
  5. GLUCOSE [Concomitant]
     Active Substance: DEXTROSE
     Indication: PRODUCT USED FOR UNKNOWN INDICATION
     Dosage: 1000 ML, QD
     Route: 042
     Dates: start: 20161017, end: 20161019
  6. GLUCOSE [Concomitant]
     Active Substance: DEXTROSE
     Dosage: 500 ML, QD
     Route: 042
     Dates: start: 20161018, end: 20161018
  7. SODIUM LACTATE. [Concomitant]
     Active Substance: SODIUM LACTATE
     Indication: PRODUCT USED FOR UNKNOWN INDICATION
     Dosage: 1000 ML, QD
     Route: 042
     Dates: start: 20161017, end: 20161021
  8. SODIUM BICARBONATE. [Concomitant]
     Active Substance: SODIUM BICARBONATE
     Dosage: 125 ML, QD
     Route: 042
     Dates: start: 20161018, end: 20161020
  9. SODIUM NITROPRUSIDE [Concomitant]
     Indication: BLOOD PRESSURE INCREASED
     Dosage: 50 MG, QD
     Route: 042
     Dates: start: 20161017, end: 20161018
  10. TRIMETAZIDINE DIHYDROCHLORIDE [Concomitant]
     Active Substance: TRIMETAZIDINE DIHYDROCHLORIDE
     Indication: BLOOD PRESSURE INCREASED
     Dosage: 35 MG, BID
     Route: 048
     Dates: start: 20161107
  11. RECOMBINANT HUMAN ERYTHROPOIETIN [Concomitant]
     Active Substance: ERYTHROPOIETIN
     Dosage: 1 WU, QD
     Route: 058
     Dates: start: 20161022, end: 20161024
  12. ALPROSTADIL. [Concomitant]
     Active Substance: ALPROSTADIL
     Indication: PRODUCT USED FOR UNKNOWN INDICATION
     Dosage: 20 UG, QD
     Route: 042
     Dates: start: 20161018, end: 20161107
  13. NATRILIX [Concomitant]
     Active Substance: INDAPAMIDE
     Indication: BLOOD PRESSURE INCREASED
     Dosage: 1.5 MG, BID
     Route: 048
     Dates: start: 20161028, end: 20161102
  14. TACROLIMUS. [Suspect]
     Active Substance: TACROLIMUS
     Dosage: 5 MG, QD
     Route: 065
     Dates: start: 20161104, end: 20161114
  15. TACROLIMUS. [Suspect]
     Active Substance: TACROLIMUS
     Dosage: 3.5 MG, QD
     Route: 065
     Dates: start: 20161127, end: 20161127
  16. GLUTAMIN [Concomitant]
     Indication: PRODUCT USED FOR UNKNOWN INDICATION
     Dosage: 20000 MG, QD
     Route: 042
     Dates: start: 20161018, end: 20161021
  17. LANSOPRAZOLE. [Concomitant]
     Active Substance: LANSOPRAZOLE
     Dosage: 60 MG, BID
     Route: 042
     Dates: start: 20161017, end: 20161026
  18. SODIUM CHLORIDE. [Concomitant]
     Active Substance: SODIUM CHLORIDE
     Indication: PRODUCT USED FOR UNKNOWN INDICATION
     Dosage: 300 ML, QD
     Route: 042
     Dates: start: 20161017, end: 20161017
  19. MEROPENEM. [Concomitant]
     Active Substance: MEROPENEM
     Indication: ANTI-INFECTIVE THERAPY
     Dosage: 500 MG, TID
     Route: 042
     Dates: start: 20161021, end: 20161027
  20. HUMAN ALBUMIN [Concomitant]
     Active Substance: ALBUMIN HUMAN
     Dosage: 50 ML, QD
     Route: 042
     Dates: start: 20161023, end: 20161025
  21. TORASEMIDE [Concomitant]
     Active Substance: TORSEMIDE
     Dosage: 40 MG, QD
     Route: 042
     Dates: start: 20161021, end: 20161021
  22. MAGNESIUM ISOGLYCYRRHIZINATE [Concomitant]
     Active Substance: MAGNESIUM ISOGLYCYRRHIZINATE
     Indication: PRODUCT USED FOR UNKNOWN INDICATION
     Dosage: 150 MG, QD
     Route: 042
     Dates: start: 20161008, end: 20161016
  23. LEVAMLODIPINE [Concomitant]
     Active Substance: LEVAMLODIPINE
     Dosage: 5 MG, BID
     Route: 048
     Dates: start: 20161107
  24. LASIX [Concomitant]
     Active Substance: FUROSEMIDE
     Indication: DIURETIC THERAPY
     Dosage: 100 MG, QD
     Route: 042
     Dates: start: 20161017, end: 20161017
  25. BASILIXIMAB [Suspect]
     Active Substance: BASILIXIMAB
     Indication: RENAL TRANSPLANT
     Dosage: 20 MG, QD
     Route: 065
     Dates: start: 20161017, end: 20161017
  26. METHYLPREDNISOLONE. [Suspect]
     Active Substance: METHYLPREDNISOLONE
     Indication: IMMUNOSUPPRESSANT DRUG THERAPY
     Dosage: 500 MG, QD
     Route: 065
     Dates: start: 20161017, end: 20161018
  27. TACROLIMUS. [Suspect]
     Active Substance: TACROLIMUS
     Dosage: 4 MG, QD
     Route: 065
     Dates: start: 20161130, end: 20161130
  28. TACROLIMUS. [Suspect]
     Active Substance: TACROLIMUS
     Dosage: 4 MG, QD
     Route: 065
     Dates: start: 20161202, end: 20161208
  29. TACROLIMUS. [Suspect]
     Active Substance: TACROLIMUS
     Dosage: 4 MG, QD
     Route: 065
     Dates: start: 20161216, end: 20161229
  30. PAMBA [Concomitant]
     Indication: PRODUCT USED FOR UNKNOWN INDICATION
     Dosage: 600 MG, QD
     Route: 042
     Dates: start: 20161017, end: 20161017
  31. IRON FERROUS POLYSACCHARIDE COMPLEX [Concomitant]
     Indication: ANAEMIA
     Dosage: 150 MG, QD
     Route: 048
     Dates: start: 20161023
  32. METHIONINE [Concomitant]
     Active Substance: METHIONINE
     Indication: PRODUCT USED FOR UNKNOWN INDICATION
     Dosage: 220 MG, QD
     Route: 042
     Dates: start: 20161018, end: 20161026
  33. GLUCOSE [Concomitant]
     Active Substance: DEXTROSE
     Dosage: 1000 ML, QD
     Route: 042
     Dates: start: 20161022, end: 20161022
  34. HUMAN ALBUMIN [Concomitant]
     Active Substance: ALBUMIN HUMAN
     Dosage: 50 ML, BID
     Route: 042
     Dates: start: 20161017, end: 20161022
  35. SODIUM BICARBONATE. [Concomitant]
     Active Substance: SODIUM BICARBONATE
     Dosage: 250 ML, QD
     Route: 042
     Dates: start: 20161027, end: 20161027
  36. VIT K1 [Concomitant]
     Active Substance: PHYTONADIONE
     Indication: HAEMOSTASIS
     Dosage: 20 MG, QD
     Route: 042
     Dates: start: 20161017, end: 20161017
  37. TACROLIMUS. [Suspect]
     Active Substance: TACROLIMUS
     Indication: IMMUNOSUPPRESSANT DRUG THERAPY
     Dosage: 8 MG, QD
     Route: 065
     Dates: start: 20161020, end: 20161021
  38. TACROLIMUS. [Suspect]
     Active Substance: TACROLIMUS
     Dosage: 3.5 MG, QD
     Route: 065
     Dates: start: 20161125, end: 20161125
  39. SCOPOLAMINE [Concomitant]
     Active Substance: SCOPOLAMINE
     Indication: PRODUCT USED FOR UNKNOWN INDICATION
     Dosage: 0.3 MG, QD
     Route: 030
     Dates: start: 20161017, end: 20161017
  40. DOPAMINE [Concomitant]
     Active Substance: DOPAMINE\DOPAMINE HYDROCHLORIDE
     Indication: PRODUCT USED FOR UNKNOWN INDICATION
     Dosage: 5 MG, QD
     Route: 042
     Dates: start: 20161018, end: 20161019
  41. LANSOPRAZOLE. [Concomitant]
     Active Substance: LANSOPRAZOLE
     Dosage: 60 MG, QD
     Route: 042
     Dates: start: 20161027, end: 20161027
  42. XIN WEI AN [Concomitant]
     Indication: PRODUCT USED FOR UNKNOWN INDICATION
     Dosage: 10 MG, BID
     Route: 048
     Dates: start: 20161027, end: 20161102
  43. CREATINE PHOSPHATE [Concomitant]
     Active Substance: PHOSPHOCREATINE
     Indication: PRODUCT USED FOR UNKNOWN INDICATION
     Dosage: 1000 MG, QD
     Route: 042
     Dates: start: 20161018, end: 20161025
  44. CALCIUM GLUCONATE. [Concomitant]
     Active Substance: CALCIUM GLUCONATE
     Dosage: 20 ML, QD
     Route: 042
     Dates: start: 20161023, end: 20161023
  45. CALCIUM GLUCONATE. [Concomitant]
     Active Substance: CALCIUM GLUCONATE
     Dosage: 30 ML, QD
     Route: 042
     Dates: start: 20161027, end: 20161027
  46. TIGECYCLINE. [Concomitant]
     Active Substance: TIGECYCLINE
     Indication: ANTI-INFECTIVE THERAPY
     Dosage: 50 MG, BID
     Route: 042
     Dates: start: 20161018, end: 20161031
  47. CEFOPERAZONE SODIUM AND SULBACTAM SODIUM [Concomitant]
     Active Substance: CEFOPERAZONE SODIUM\SULBACTAM SODIUM
     Indication: ANTI-INFECTIVE THERAPY
     Dosage: 1500 MG, QD
     Route: 042
     Dates: start: 20161017, end: 20161017
  48. INSULIN [Concomitant]
     Active Substance: INSULIN NOS
     Indication: BLOOD GLUCOSE INCREASED
     Dosage: 10 IU, QD
     Route: 042
     Dates: start: 20161022, end: 20161022
  49. INSULIN [Concomitant]
     Active Substance: INSULIN NOS
     Dosage: 12 IU, QD
     Route: 042
     Dates: start: 20161031, end: 20161031
  50. RECOMBINANT HUMAN ERYTHROPOIETIN [Concomitant]
     Active Substance: ERYTHROPOIETIN
     Indication: BLOOD ERYTHROPOIETIN ABNORMAL
     Dosage: 1 WU, QD
     Route: 042
     Dates: start: 20161018, end: 20161020
  51. RECOMBINANT HUMAN ERYTHROPOIETIN [Concomitant]
     Active Substance: ERYTHROPOIETIN
     Dosage: 1 WU, QD
     Route: 058
     Dates: start: 20161027, end: 20161027
  52. COENZYME A [Concomitant]
     Active Substance: COENZYME A
     Dosage: 15 MG, QD
     Route: 042
     Dates: start: 20161027, end: 20161027
  53. PIPERACILIN/TAZOBACTAM [Concomitant]
     Active Substance: PIPERACILLIN SODIUM\TAZOBACTAM SODIUM
     Dosage: 3750 MG, BID
     Route: 042
     Dates: start: 20161028, end: 20161104
  54. MYFORTIC [Suspect]
     Active Substance: MYCOPHENOLATE SODIUM
     Dosage: 1080 MG, QD
     Route: 048
     Dates: start: 20161026
  55. PREDNISONE. [Suspect]
     Active Substance: PREDNISONE
     Indication: IMMUNOSUPPRESSANT DRUG THERAPY
     Dosage: 50 MG, QD
     Route: 065
     Dates: start: 20161020, end: 20161020
  56. TACROLIMUS. [Suspect]
     Active Substance: TACROLIMUS
     Dosage: 3 MG, QD
     Route: 065
     Dates: start: 20161025, end: 20161027
  57. TACROLIMUS. [Suspect]
     Active Substance: TACROLIMUS
     Dosage: 4.5 MG, QD
     Route: 065
     Dates: start: 20161028, end: 20161103
  58. TACROLIMUS. [Suspect]
     Active Substance: TACROLIMUS
     Dosage: 4 MG, QD
     Route: 065
     Dates: start: 20161126, end: 20161126
  59. TACROLIMUS. [Suspect]
     Active Substance: TACROLIMUS
     Dosage: 4 MG, QD
     Route: 065
     Dates: start: 20161128, end: 20161128
  60. TACROLIMUS. [Suspect]
     Active Substance: TACROLIMUS
     Dosage: 4.5 MG, QD
     Route: 065
     Dates: start: 20161230, end: 20170112
  61. PHENTOLAMINE MESYLATE. [Concomitant]
     Active Substance: PHENTOLAMINE MESYLATE
     Indication: PRODUCT USED FOR UNKNOWN INDICATION
     Dosage: 5 MG, QD
     Route: 042
     Dates: start: 20161018, end: 20161019
  62. CALCIUM GLUCONATE. [Concomitant]
     Active Substance: CALCIUM GLUCONATE
     Dosage: 10 ML, QD
     Route: 042
     Dates: start: 20161024, end: 20161024
  63. GLUCOSE [Concomitant]
     Active Substance: DEXTROSE
     Dosage: 1000 ML, QD
     Route: 042
     Dates: start: 20161020, end: 20161020
  64. GLUCOSE [Concomitant]
     Active Substance: DEXTROSE
     Dosage: 250 ML, QD
     Route: 042
     Dates: start: 20161031, end: 20161031
  65. SODIUM BICARBONATE. [Concomitant]
     Active Substance: SODIUM BICARBONATE
     Indication: PRODUCT USED FOR UNKNOWN INDICATION
     Dosage: 1500 MG, TID
     Route: 048
     Dates: start: 20161029, end: 20161031
  66. SODIUM BICARBONATE. [Concomitant]
     Active Substance: SODIUM BICARBONATE
     Dosage: 2000 MG, TID
     Route: 048
     Dates: start: 20161101, end: 20161107
  67. TIGECYCLINE. [Concomitant]
     Active Substance: TIGECYCLINE
     Dosage: 50 MG, BID
     Route: 042
     Dates: start: 20161101, end: 20161104
  68. TORASEMIDE [Concomitant]
     Active Substance: TORSEMIDE
     Dosage: 60 MG, QD
     Route: 042
     Dates: start: 20161019, end: 20161019
  69. TORASEMIDE [Concomitant]
     Active Substance: TORSEMIDE
     Dosage: 40 MG, QD
     Route: 042
     Dates: start: 20161020, end: 20161022
  70. LEVOFLOXACIN. [Concomitant]
     Active Substance: LEVOFLOXACIN
     Dosage: 600 MG, QD
     Route: 042
     Dates: start: 20161017, end: 20161017
  71. LEVAMLODIPINE [Concomitant]
     Active Substance: LEVAMLODIPINE
     Indication: BLOOD PRESSURE INCREASED
     Dosage: 5 MG, BID
     Route: 048
     Dates: start: 20161020, end: 20161107
  72. NATRILIX [Concomitant]
     Active Substance: INDAPAMIDE
     Dosage: 1.5 MG, BID
     Route: 048
     Dates: start: 20161107
  73. BETALOC [Concomitant]
     Active Substance: METOPROLOL TARTRATE
     Dosage: 47.5 MG, QD
     Route: 048
     Dates: start: 20161117
  74. BASILIXIMAB [Suspect]
     Active Substance: BASILIXIMAB
     Dosage: 20 MG, QD
     Route: 065
     Dates: start: 20161020, end: 20161020
  75. PREDNISONE. [Suspect]
     Active Substance: PREDNISONE
     Dosage: 40 MG, QD
     Route: 065
     Dates: start: 20161021, end: 20161021
  76. PREDNISONE. [Suspect]
     Active Substance: PREDNISONE
     Dosage: 30 MG, QD
     Route: 065
     Dates: start: 20161022, end: 20161022
  77. TACROLIMUS. [Suspect]
     Active Substance: TACROLIMUS
     Dosage: 4 MG, QD
     Route: 065
     Dates: start: 20161116, end: 20161124
  78. TACROLIMUS. [Suspect]
     Active Substance: TACROLIMUS
     Dosage: 3.5 MG, QD
     Route: 065
     Dates: start: 20161129, end: 20161129
  79. GLUTAMIN [Concomitant]
     Indication: PRODUCT USED FOR UNKNOWN INDICATION
     Dosage: 20000 MG, QD
     Route: 042
     Dates: start: 20161022, end: 20161025
  80. SODIUM ACETATE. [Concomitant]
     Active Substance: SODIUM ACETATE
     Dosage: 2000 ML, QD
     Route: 042
     Dates: start: 20161021, end: 20161021
  81. XIN WEI AN [Concomitant]
     Dosage: 10 MG, QD
     Route: 048
     Dates: start: 20161103
  82. LIDOCAINE. [Concomitant]
     Active Substance: LIDOCAINE
     Indication: VASOSPASM
     Dosage: 10 ML, QD
     Route: 042
     Dates: start: 20161008, end: 20161019
  83. MONTMORILLONITE [Concomitant]
     Active Substance: MONTMORILLONITE
     Indication: DIARRHOEA
     Dosage: 30000 MG, QD
     Route: 048
     Dates: start: 20161021, end: 20161021
  84. MICAFUNGIN SODIUM [Concomitant]
     Active Substance: MICAFUNGIN SODIUM
     Dosage: 100 MG, QD
     Route: 042
     Dates: start: 20161028, end: 20161103
  85. CALCIUM GLUCONATE. [Concomitant]
     Active Substance: CALCIUM GLUCONATE
     Indication: PRODUCT USED FOR UNKNOWN INDICATION
     Dosage: 20 ML, QD
     Route: 042
     Dates: start: 20161017, end: 20161018
  86. CALCIUM GLUCONATE. [Concomitant]
     Active Substance: CALCIUM GLUCONATE
     Dosage: 20 ML, QD
     Route: 042
     Dates: start: 20161019, end: 20161020
  87. SODIUM LACTATE. [Concomitant]
     Active Substance: SODIUM LACTATE
     Dosage: 1000 ML, QD
     Route: 042
     Dates: start: 20161021, end: 20161022
  88. SODIUM BICARBONATE. [Concomitant]
     Active Substance: SODIUM BICARBONATE
     Dosage: 1500 MG, TID
     Route: 048
     Dates: start: 20161107
  89. SODIUM BICARBONATE. [Concomitant]
     Active Substance: SODIUM BICARBONATE
     Dosage: 250 ML, QD
     Route: 042
     Dates: start: 20161031, end: 20161031
  90. CEFOPERAZONE SODIUM AND SULBACTAM SODIUM [Concomitant]
     Active Substance: CEFOPERAZONE SODIUM\SULBACTAM SODIUM
     Dosage: 1500 MG, BID
     Route: 042
     Dates: start: 20161018, end: 20161021
  91. AMBROXOL HYDROCHLORIDE [Concomitant]
     Active Substance: AMBROXOL HYDROCHLORIDE
     Dosage: 150 MG, QD
     Route: 055
     Dates: start: 20161030, end: 20161107
  92. PIPERACILIN/TAZOBACTAM [Concomitant]
     Active Substance: PIPERACILLIN SODIUM\TAZOBACTAM SODIUM
     Indication: ANTI-INFECTIVE THERAPY
     Dosage: 1250 MG, QD
     Route: 042
     Dates: start: 20161027, end: 20161027
  93. MYFORTIC [Suspect]
     Active Substance: MYCOPHENOLATE SODIUM
     Indication: RENAL TRANSPLANT
     Dosage: 1800 MG, QD
     Route: 048
     Dates: start: 20161018, end: 20161025
  94. PREDNISONE. [Suspect]
     Active Substance: PREDNISONE
     Dosage: 5 MG, QD
     Route: 065
     Dates: start: 20161028
  95. TACROLIMUS. [Suspect]
     Active Substance: TACROLIMUS
     Dosage: 5 MG, QD
     Route: 065
     Dates: start: 20161022, end: 20161024
  96. TACROLIMUS. [Suspect]
     Active Substance: TACROLIMUS
     Dosage: 4.5 MG, QD
     Route: 065
     Dates: start: 20161115, end: 20161115
  97. TACROLIMUS. [Suspect]
     Active Substance: TACROLIMUS
     Dosage: 3.5 MG, QD
     Route: 065
     Dates: start: 20161201, end: 20161201
  98. TACROLIMUS. [Suspect]
     Active Substance: TACROLIMUS
     Dosage: 3.5 MG, QD
     Route: 065
     Dates: start: 20161209, end: 20161215
  99. SODIUM ACETATE. [Concomitant]
     Active Substance: SODIUM ACETATE
     Dosage: 1000 ML, QD
     Route: 042
     Dates: start: 20161018, end: 20161021
  100. POTASSIUM CHLORIDE. [Concomitant]
     Active Substance: POTASSIUM CHLORIDE
     Indication: PRODUCT USED FOR UNKNOWN INDICATION
     Dosage: 2000 MG, BID
     Route: 048
     Dates: start: 20161022, end: 20161022
  101. POTASSIUM CHLORIDE. [Concomitant]
     Active Substance: POTASSIUM CHLORIDE
     Dosage: 30 ML, QD
     Route: 042
     Dates: start: 20161022, end: 20161022
  102. GLUCOSE [Concomitant]
     Active Substance: DEXTROSE
     Dosage: 40 ML, QD
     Route: 042
     Dates: start: 20161031, end: 20161031
  103. HUMAN ALBUMIN [Concomitant]
     Active Substance: ALBUMIN HUMAN
     Indication: PRODUCT USED FOR UNKNOWN INDICATION
     Dosage: 100 ML, QD
     Route: 042
     Dates: start: 20161017, end: 20161017
  104. SODIUM BICARBONATE. [Concomitant]
     Active Substance: SODIUM BICARBONATE
     Indication: PRODUCT USED FOR UNKNOWN INDICATION
     Dosage: 250 ML, QD
     Route: 042
     Dates: start: 20161017, end: 20161017
  105. SODIUM BICARBONATE. [Concomitant]
     Active Substance: SODIUM BICARBONATE
     Dosage: 125 ML, QD
     Route: 042
     Dates: start: 20161103, end: 20161103
  106. TORASEMIDE [Concomitant]
     Active Substance: TORSEMIDE
     Indication: DIURETIC THERAPY
     Dosage: 40 MG, QD
     Route: 042
     Dates: start: 20161017, end: 20161017
  107. AMBROXOL HYDROCHLORIDE [Concomitant]
     Active Substance: AMBROXOL HYDROCHLORIDE
     Indication: PRODUCTIVE COUGH
     Dosage: 30 MG, BID
     Route: 055
     Dates: start: 20161020, end: 20161022
  108. BETALOC [Concomitant]
     Active Substance: METOPROLOL TARTRATE
     Indication: BLOOD PRESSURE INCREASED
     Dosage: 47.5 MG, QD
     Route: 048
     Dates: start: 20161025, end: 20161117
  109. PREDNISONE. [Suspect]
     Active Substance: PREDNISONE
     Dosage: 20 MG, QD
     Route: 065
     Dates: start: 20161023, end: 20161023
  110. PREDNISONE. [Suspect]
     Active Substance: PREDNISONE
     Dosage: 10 MG, QD
     Route: 065
     Dates: start: 20161024, end: 20161027
  111. TACROLIMUS. [Suspect]
     Active Substance: TACROLIMUS
     Dosage: 5 MG, QD
     Route: 065
     Dates: start: 20170113
  112. SODIUM ACETATE. [Concomitant]
     Active Substance: SODIUM ACETATE
     Indication: PRODUCT USED FOR UNKNOWN INDICATION
     Dosage: 1000 ML, QD
     Route: 042
     Dates: start: 20161017, end: 20161017
  113. ISOSORBIDE MONONITRATE. [Concomitant]
     Active Substance: ISOSORBIDE MONONITRATE
     Indication: BLOOD PRESSURE INCREASED
     Dosage: 60 MG, BID
     Route: 048
     Dates: start: 20161023
  114. SODIUM PHOSPHATE [Concomitant]
     Active Substance: SODIUM PHOSPHATE
     Indication: PRODUCT USED FOR UNKNOWN INDICATION
     Dosage: 40 MG, QD
     Route: 042
     Dates: start: 20161018, end: 20161026
  115. POTASSIUM CHLORIDE. [Concomitant]
     Active Substance: POTASSIUM CHLORIDE
     Indication: PRODUCT USED FOR UNKNOWN INDICATION
     Dosage: 30 ML, QD
     Route: 042
     Dates: start: 20161020, end: 20161020
  116. MICAFUNGIN SODIUM [Concomitant]
     Active Substance: MICAFUNGIN SODIUM
     Indication: ANTI-INFECTIVE THERAPY
     Dosage: 100 MG, QD
     Route: 042
     Dates: start: 20161019, end: 20161027
  117. CALCIUM GLUCONATE. [Concomitant]
     Active Substance: CALCIUM GLUCONATE
     Dosage: 30 ML, QD
     Route: 042
     Dates: start: 20161022, end: 20161022
  118. COENZYME A [Concomitant]
     Active Substance: COENZYME A
     Indication: PRODUCT USED FOR UNKNOWN INDICATION
     Dosage: 15 MG, QD
     Route: 042
     Dates: start: 20161018, end: 20161026
  119. LEVOFLOXACIN. [Concomitant]
     Active Substance: LEVOFLOXACIN
     Indication: ANTI-INFECTIVE THERAPY
     Dosage: 600 MG, QD
     Route: 042
     Dates: start: 20161017, end: 20161017
  120. LASIX [Concomitant]
     Active Substance: FUROSEMIDE
     Dosage: 80 MG, QD
     Route: 042
     Dates: start: 20161018, end: 20161019

REACTIONS (11)
  - Anaemia [Fatal]
  - Product use issue [Unknown]
  - Neutrophil count increased [Unknown]
  - Blood glucose increased [Recovering/Resolving]
  - Cardiac arrest [Unknown]
  - Upper respiratory tract infection [Recovering/Resolving]
  - Blood urea increased [Unknown]
  - Red blood cells urine positive [Unknown]
  - Pyrexia [Fatal]
  - Lung infection [Fatal]
  - Alanine aminotransferase increased [Unknown]

NARRATIVE: CASE EVENT DATE: 20161018
